FAERS Safety Report 6101117-6 (Version None)
Quarter: 2009Q1

REPORT INFORMATION
  Report Type: 
  Country: None (occurrence: None)
  Receive Date: 20090304
  Receipt Date: 20090225
  Transmission Date: 20090719
  Serious: Yes (Death, Life-Threatening, Other)
  Sender: FDA-Public Use
  Company Number: KR-ELI_LILLY_AND_COMPANY-KR200805005448

PATIENT
  Sex: Male
  Weight: 67 kg

DRUGS (5)
  1. PEMETREXED [Suspect]
     Indication: PLEURAL MESOTHELIOMA MALIGNANT
     Dosage: 500 MG/M2, UNKNOWN
     Route: 065
     Dates: start: 20070507
  2. CARBOPLATIN [Suspect]
     Indication: PLEURAL MESOTHELIOMA MALIGNANT
     Dosage: 5AUC
     Dates: start: 20070507
  3. FOLIC ACID [Concomitant]
     Indication: PROPHYLAXIS
     Dosage: 1 MG, DAILY (1/D)
     Route: 048
     Dates: start: 20070507
  4. VITAMIN B-12 [Concomitant]
     Indication: PROPHYLAXIS
     Dosage: 1000 MG, DAILY (1/D)
     Route: 058
     Dates: start: 20070506, end: 20070506
  5. DEXAMETHASONE [Concomitant]
     Indication: PROPHYLAXIS
     Dosage: 4 MG, 2/D
     Route: 048
     Dates: start: 20070507, end: 20070509

REACTIONS (3)
  - CARDIAC ARREST [None]
  - PULMONARY OEDEMA [None]
  - TUMOUR LYSIS SYNDROME [None]
